FAERS Safety Report 14652554 (Version 2)
Quarter: 2018Q2

REPORT INFORMATION
  Report Type: Spontaneous
  Country: US (occurrence: US)
  Receive Date: 20180319
  Receipt Date: 20180507
  Transmission Date: 20180711
  Serious: Yes (Other)
  Sender: FDA-Public Use
  Company Number: US-SUN PHARMACEUTICAL INDUSTRIES LTD-2018US-166637

PATIENT
  Age: 13 Year
  Sex: Female

DRUGS (3)
  1. CYCLOSPORINE. [Suspect]
     Active Substance: CYCLOSPORINE
     Indication: IMMUNOSUPPRESSANT DRUG LEVEL
     Dosage: 175 MG, DAILY, DIVIDED TWICE DAILY
     Route: 048
  2. PREDNISONE. [Suspect]
     Active Substance: PREDNISONE
     Indication: IMMUNOSUPPRESSANT DRUG THERAPY
     Dosage: 30 MG, DAILY
     Route: 048
  3. RILONACEPT [Suspect]
     Active Substance: RILONACEPT
     Indication: IMMUNOSUPPRESSANT DRUG LEVEL
     Dosage: 110 MG, 1/WEEK
     Route: 058

REACTIONS (5)
  - Osteomyelitis [Unknown]
  - Pneumoconiosis [Unknown]
  - Staphylococcal bacteraemia [Unknown]
  - Abscess sterile [Unknown]
  - Oesophageal candidiasis [Unknown]
